FAERS Safety Report 24579133 (Version 2)
Quarter: 2024Q4

REPORT INFORMATION
  Report Type: Report from Study
  Country: US (occurrence: US)
  Receive Date: 20241105
  Receipt Date: 20241129
  Transmission Date: 20250114
  Serious: No
  Sender: Unknown Manufacturer
  Company Number: US-MIRUM PHARMACEUTICALS, INC.-US-MIR-24-00964

PATIENT
  Age: 5 Year
  Sex: Male
  Weight: 17.2 kg

DRUGS (1)
  1. LIVMARLI [Suspect]
     Active Substance: MARALIXIBAT CHLORIDE
     Indication: Alagille syndrome
     Dosage: 0.7 MILLILITER, QD
     Route: 065

REACTIONS (5)
  - Pruritus [Unknown]
  - Blood bilirubin increased [Not Recovered/Not Resolved]
  - Ear infection [Not Recovered/Not Resolved]
  - Xanthoma [Not Recovered/Not Resolved]
  - Drug ineffective [Unknown]

NARRATIVE: CASE EVENT DATE: 20240806
